FAERS Safety Report 8296829-2 (Version None)
Quarter: 2012Q2

REPORT INFORMATION
  Report Type: 
  Country: None (occurrence: None)
  Receive Date: 20120419
  Receipt Date: 20120209
  Transmission Date: 20120825
  Serious: No
  Sender: FDA-Public Use
  Company Number: US-ASTRAZENECA-2011SE64743

PATIENT
  Age: 61 Year
  Sex: Female
  Weight: 65.3 kg

DRUGS (5)
  1. NEXIUM [Suspect]
     Indication: GASTRITIS
     Route: 048
  2. NEXIUM [Suspect]
     Indication: IRRITABLE BOWEL SYNDROME
     Route: 048
  3. LANTO [Concomitant]
  4. OMEPRAZOLE [Suspect]
     Route: 048
  5. PANTOPRAZOLE [Concomitant]

REACTIONS (11)
  - HYPOTHYROIDISM [None]
  - HYPERLIPIDAEMIA [None]
  - DRUG DOSE OMISSION [None]
  - DRUG PRESCRIBING ERROR [None]
  - DIABETES MELLITUS [None]
  - HYPERTENSION [None]
  - ABDOMINAL DISCOMFORT [None]
  - INFLAMMATION [None]
  - DRUG INEFFECTIVE [None]
  - PANCREATIC DISORDER [None]
  - CHRONIC OBSTRUCTIVE PULMONARY DISEASE [None]
